FAERS Safety Report 5641729-7 (Version None)
Quarter: 2008Q1

REPORT INFORMATION
  Report Type: 
  Country: None (occurrence: None)
  Receive Date: 20080131
  Receipt Date: 20071106
  Transmission Date: 20080703
  Serious: No
  Sender: FDA-Public Use
  Company Number: PHEH2007US13971

PATIENT
  Age: 75 Year
  Sex: Male
  Weight: 90.7 kg

DRUGS (3)
  1. TEKTURNA [Suspect]
     Indication: HYPERTENSION
     Dosage: 300 MG, QD, ORAL
     Route: 048
     Dates: start: 20070803, end: 20071016
  2. COREG [Concomitant]
  3. LEVOXYL [Concomitant]

REACTIONS (4)
  - MALAISE [None]
  - MYALGIA [None]
  - RASH MACULO-PAPULAR [None]
  - URTICARIA [None]
